FAERS Safety Report 13718447 (Version 2)
Quarter: 2017Q4

REPORT INFORMATION
  Report Type: Spontaneous
  Country: IT (occurrence: IT)
  Receive Date: 20170705
  Receipt Date: 20171110
  Transmission Date: 20180320
  Serious: Yes (Hospitalization, Other)
  Sender: FDA-Public Use
  Company Number: IT-SA-2017SA114725

PATIENT
  Age: 23 Year
  Sex: Male
  Weight: 84 kg

DRUGS (3)
  1. FOLINA [Concomitant]
     Active Substance: FOLIC ACID
     Route: 065
  2. IRON [Concomitant]
     Active Substance: IRON
     Route: 065
  3. LEMTRADA [Suspect]
     Active Substance: ALEMTUZUMAB
     Indication: MULTIPLE SCLEROSIS
     Route: 041
     Dates: start: 20170609

REACTIONS (3)
  - Cytomegalovirus infection [Unknown]
  - Pyrexia [Not Recovered/Not Resolved]
  - Haemolytic anaemia [Recovered/Resolved]

NARRATIVE: CASE EVENT DATE: 20170617
